FAERS Safety Report 4539493-8 (Version None)
Quarter: 2004Q4

REPORT INFORMATION
  Report Type: 
  Country: None (occurrence: None)
  Receive Date: 20041222
  Receipt Date: 20041216
  Transmission Date: 20050328
  Serious: Yes (Death, Disabling, Other)
  Sender: FDA-Public Use
  Company Number: 028-20785-04100837

PATIENT
  Age: 51 Year
  Sex: Female

DRUGS (11)
  1. THALOMID [Suspect]
     Indication: MULTIPLE MYELOMA
     Dosage: 200 MG, QHS, ORAL
     Route: 048
     Dates: start: 20040728, end: 20041101
  2. CLODRONATE          (CLODRONATE DISODIUM) [Suspect]
     Indication: BONE DISORDER
     Dosage: 1600 MG, DAILY, ORAL
     Route: 048
     Dates: end: 20040728
  3. WARFARIN             (WARFARIN) [Concomitant]
  4. LEVOTHYROXINE SODIUM [Concomitant]
  5. LACTULOSE [Concomitant]
  6. SENNOSIDES          (SENNOSIDES A+B) [Concomitant]
  7. DOCUSATE SODIUM             (DOCSATE SODIUM) [Concomitant]
  8. CACLIUM CARBONATE            (CALCIUM CARBONATE) [Concomitant]
  9. VITAMIN B           (VITAMIN B) [Concomitant]
  10. VITAMIN C         (ASCORBIC ACID) [Concomitant]
  11. ERYTHROPOIETIN           (ERYTHROPOIETIN) [Concomitant]

REACTIONS (6)
  - HAEMODIALYSIS [None]
  - HAEMORRHAGE [None]
  - INTERNATIONAL NORMALISED RATIO INCREASED [None]
  - PLATELET COUNT DECREASED [None]
  - RENAL FAILURE CHRONIC [None]
  - SKIN BLEEDING [None]
